FAERS Safety Report 9372740 (Version 1)
Quarter: 2013Q2

REPORT INFORMATION
  Report Type: Spontaneous
  Country: US (occurrence: US)
  Receive Date: 20130627
  Receipt Date: 20130627
  Transmission Date: 20140414
  Serious: Yes (Hospitalization, Other)
  Sender: FDA-Public Use
  Company Number: US-JNJFOC-20130610581

PATIENT
  Sex: Female

DRUGS (4)
  1. INVEGA [Suspect]
     Indication: SCHIZOAFFECTIVE DISORDER
     Route: 048
     Dates: start: 2009, end: 2013
  2. BIOTIN [Suspect]
     Indication: PRODUCT USED FOR UNKNOWN INDICATION
     Route: 065
     Dates: end: 2013
  3. SEROQUEL [Concomitant]
     Route: 065
  4. DEPAKOTE [Concomitant]
     Route: 065

REACTIONS (7)
  - Adverse event [Not Recovered/Not Resolved]
  - Pericardial effusion [Unknown]
  - Aphasia [Not Recovered/Not Resolved]
  - Abnormal behaviour [Not Recovered/Not Resolved]
  - Memory impairment [Not Recovered/Not Resolved]
  - Mood swings [Not Recovered/Not Resolved]
  - Scar [Not Recovered/Not Resolved]
